FAERS Safety Report 22181685 (Version 1)
Quarter: 2023Q2

REPORT INFORMATION
  Report Type: Report from Study
  Country: US (occurrence: US)
  Receive Date: 20230406
  Receipt Date: 20230406
  Transmission Date: 20230722
  Serious: Yes (Other)
  Sender: FDA-Public Use
  Company Number: US-002147023-NVSC2023US075573

PATIENT
  Age: 15 Year
  Sex: Female
  Weight: 44 kg

DRUGS (16)
  1. TRIAMCINOLONE ACETONIDE [Suspect]
     Active Substance: TRIAMCINOLONE ACETONIDE
     Indication: Psoriasis
     Dosage: 0.1 %, BID
     Route: 065
  2. TRIAMCINOLONE ACETONIDE [Suspect]
     Active Substance: TRIAMCINOLONE ACETONIDE
     Indication: Guttate psoriasis
  3. PREDNISONE [Suspect]
     Active Substance: PREDNISONE
     Indication: Psoriasis
     Dosage: UNK
     Route: 065
  4. PREDNISONE [Suspect]
     Active Substance: PREDNISONE
     Indication: Guttate psoriasis
  5. FLUCONAZOLE [Suspect]
     Active Substance: FLUCONAZOLE
     Indication: Psoriasis
     Dosage: 1 DOSAGE FORM, (Q 3 DAYS)
     Route: 048
  6. FLUCONAZOLE [Suspect]
     Active Substance: FLUCONAZOLE
     Indication: Guttate psoriasis
  7. CLOBETASOL [Suspect]
     Active Substance: CLOBETASOL
     Indication: Psoriasis
     Dosage: UNK UNK, BID
     Route: 061
  8. CLOBETASOL [Suspect]
     Active Substance: CLOBETASOL
     Indication: Guttate psoriasis
  9. CLOBETASOL [Suspect]
     Active Substance: CLOBETASOL
     Indication: Psoriasis
     Dosage: UNK, (SCALP SOLUTION)
     Route: 061
  10. CLOBETASOL [Suspect]
     Active Substance: CLOBETASOL
     Indication: Guttate psoriasis
  11. DESONIDE [Suspect]
     Active Substance: DESONIDE
     Indication: Product used for unknown indication
     Dosage: 0.05 %
     Route: 061
  12. RITALIN [Suspect]
     Active Substance: METHYLPHENIDATE HYDROCHLORIDE
     Indication: Product used for unknown indication
     Dosage: 10 MG
     Route: 048
  13. FLUOXETINE [Suspect]
     Active Substance: FLUOXETINE HYDROCHLORIDE
     Indication: Product used for unknown indication
     Dosage: UNK
     Route: 048
  14. NYSTATIN [Suspect]
     Active Substance: NYSTATIN
     Indication: Product used for unknown indication
     Dosage: 100,000 UNIT/GRAM
     Route: 061
  15. KETOCONAZOLE [Suspect]
     Active Substance: KETOCONAZOLE
     Indication: Psoriasis
     Dosage: 2 %, (TOPICAL SHAMPOO)
     Route: 061
  16. KETOCONAZOLE [Suspect]
     Active Substance: KETOCONAZOLE
     Indication: Guttate psoriasis

REACTIONS (10)
  - Major depression [Unknown]
  - Laboratory test abnormal [Unknown]
  - Skin exfoliation [Unknown]
  - Pharyngitis streptococcal [Unknown]
  - Xerosis [Unknown]
  - Neoplasm [Unknown]
  - Rash [Unknown]
  - Insomnia [Unknown]
  - Guttate psoriasis [Unknown]
  - Psoriasis [Unknown]

NARRATIVE: CASE EVENT DATE: 20230321
